FAERS Safety Report 18424727 (Version 1)
Quarter: 2020Q4

REPORT INFORMATION
  Report Type: Not Available
  Country: US (occurrence: US)
  Receive Date: 20201026
  Receipt Date: 20201026
  Transmission Date: 20210114
  Serious: No
  Sender: FDA-Public Use
  Company Number: US-NEUROCRINE BIOSCIENCES INC.-2020NBI03772

PATIENT
  Age: 60 Year
  Sex: Female

DRUGS (11)
  1. ROPINIROLE. [Concomitant]
     Active Substance: ROPINIROLE
  2. DICLOFENAC [Concomitant]
     Active Substance: DICLOFENAC
  3. MIRTAZAPINE. [Concomitant]
     Active Substance: MIRTAZAPINE
  4. PRISTIQ EXTENDED-RELEASE [Concomitant]
     Active Substance: DESVENLAFAXINE SUCCINATE
  5. SEROQUEL [Concomitant]
     Active Substance: QUETIAPINE FUMARATE
  6. INGREZZA [Suspect]
     Active Substance: VALBENAZINE
     Indication: TARDIVE DYSKINESIA
     Route: 048
     Dates: start: 20200713
  7. ATIVAN [Concomitant]
     Active Substance: LORAZEPAM
  8. CELEBREX [Concomitant]
     Active Substance: CELECOXIB
  9. DOXEPIN [Concomitant]
     Active Substance: DOXEPIN
  10. AMANTADINE. [Concomitant]
     Active Substance: AMANTADINE HYDROCHLORIDE
  11. ESOMEPRAZOLE. [Concomitant]
     Active Substance: ESOMEPRAZOLE MAGNESIUM

REACTIONS (1)
  - Muscle spasms [Not Recovered/Not Resolved]

NARRATIVE: CASE EVENT DATE: 2020
